FAERS Safety Report 9178662 (Version 1)
Quarter: 2013Q1

REPORT INFORMATION
  Report Type: Spontaneous
  Country: FR (occurrence: FR)
  Receive Date: 20130321
  Receipt Date: 20130321
  Transmission Date: 20140127
  Serious: Yes (Hospitalization)
  Sender: FDA-Public Use
  Company Number: FR-PFIZER INC-2013089784

PATIENT
  Age: 61 Year
  Sex: Male

DRUGS (10)
  1. LYRICA [Suspect]
     Dosage: UNK
     Route: 048
     Dates: start: 20130201, end: 20130207
  2. CIFLOX [Suspect]
     Dosage: UNK
     Route: 042
     Dates: start: 20130117, end: 20130207
  3. VANCOMYCIN [Concomitant]
     Dosage: 1.5 G, 2X/DAY
     Route: 042
     Dates: start: 20121231, end: 20130207
  4. ACTISKENAN [Concomitant]
     Dosage: UNK
  5. SKENAN [Concomitant]
     Dosage: UNK
  6. XATRAL [Concomitant]
     Dosage: UNK
  7. SPECIAFOLDINE [Concomitant]
     Dosage: UNK
  8. DIFFU K [Concomitant]
     Dosage: UNK
  9. EUPANTOL [Concomitant]
     Dosage: UNK
  10. DUPHALAC [Concomitant]
     Dosage: UNK

REACTIONS (2)
  - Dyskinesia [Recovered/Resolved]
  - Toxic encephalopathy [Recovered/Resolved]
